FAERS Safety Report 15215472 (Version 1)
Quarter: 2018Q3

REPORT INFORMATION
  Report Type: Spontaneous
  Country: US (occurrence: US)
  Receive Date: 20180730
  Receipt Date: 20180730
  Transmission Date: 20181010
  Serious: Yes (Death)
  Sender: FDA-Public Use
  Company Number: US-PTC THERAPEUTICS, INC.-US-2018PTC000720

PATIENT
  Age: 23 Year
  Sex: Male

DRUGS (2)
  1. EMFLAZA [Suspect]
     Active Substance: DEFLAZACORT
     Indication: DUCHENNE MUSCULAR DYSTROPHY
     Dosage: 12 MG, QD
     Route: 048
     Dates: start: 20170714
  2. EMFLAZA [Suspect]
     Active Substance: DEFLAZACORT
     Dosage: 12 MG, QD
     Route: 048
     Dates: start: 20170901

REACTIONS (1)
  - Duchenne muscular dystrophy [Fatal]

NARRATIVE: CASE EVENT DATE: 201807
